FAERS Safety Report 6547475-X (Version None)
Quarter: 2010Q1

REPORT INFORMATION
  Report Type: 
  Country: None (occurrence: None)
  Receive Date: 20100122
  Receipt Date: 20100113
  Transmission Date: 20100710
  Serious: Yes (Hospitalization, Other)
  Sender: FDA-Public Use
  Company Number: PT-ABBOTT-10P-130-0618158-00

PATIENT
  Sex: Male

DRUGS (8)
  1. KALETRA [Suspect]
     Indication: HIV INFECTION
     Dosage: 2 TABLETS, TWICE DAILY
     Route: 048
     Dates: start: 20040101, end: 20100101
  2. DEPAKENE [Concomitant]
     Indication: DRUG USE FOR UNKNOWN INDICATION
  3. MIRTAZAPINE [Concomitant]
     Indication: DRUG USE FOR UNKNOWN INDICATION
  4. OLANZAPINE [Concomitant]
     Indication: DRUG USE FOR UNKNOWN INDICATION
  5. CHLORPROMAZINE [Concomitant]
     Indication: DRUG USE FOR UNKNOWN INDICATION
  6. KIVEXA [Concomitant]
     Indication: HIV INFECTION
     Dates: start: 20080601
  7. DIDANOSINE [Concomitant]
     Indication: HIV INFECTION
     Dates: end: 20080601
  8. TENOFOVIR [Concomitant]
     Indication: HIV INFECTION
     Dates: end: 20080601

REACTIONS (8)
  - ANAEMIA [None]
  - AUTOIMMUNE THYROIDITIS [None]
  - BLOOD THYROID STIMULATING HORMONE DECREASED [None]
  - DRUG TOXICITY [None]
  - HYPOPHOSPHATAEMIA [None]
  - RENAL IMPAIRMENT [None]
  - THYROXINE DECREASED [None]
  - TRI-IODOTHYRONINE DECREASED [None]
